FAERS Safety Report 16658790 (Version 1)
Quarter: 2019Q3

REPORT INFORMATION
  Report Type: Report from Study
  Country: US (occurrence: US)
  Receive Date: 20190801
  Receipt Date: 20190801
  Transmission Date: 20191004
  Serious: Yes (Hospitalization)
  Sender: FDA-Public Use
  Company Number: US-ACTELION-A-NJ2019-190599

PATIENT
  Age: 24 Year
  Sex: Female

DRUGS (2)
  1. PRADAXA [Concomitant]
     Active Substance: DABIGATRAN ETEXILATE MESYLATE
  2. OPSUMIT [Suspect]
     Active Substance: MACITENTAN
     Indication: PULMONARY ARTERIAL HYPERTENSION
     Dosage: 10 MG, QD
     Route: 048
     Dates: start: 20190311

REACTIONS (6)
  - Pain [Unknown]
  - Dyspnoea exertional [Unknown]
  - Arthritis [Unknown]
  - Chest pain [Unknown]
  - Arthralgia [Unknown]
  - Pleurisy [Unknown]

NARRATIVE: CASE EVENT DATE: 20190411
